FAERS Safety Report 4663182-2 (Version None)
Quarter: 2005Q2

REPORT INFORMATION
  Report Type: 
  Country: None (occurrence: None)
  Receive Date: 20050513
  Receipt Date: 20050426
  Transmission Date: 20051028
  Serious: Yes (Other)
  Sender: FDA-Public Use
  Company Number: 11041

PATIENT
  Sex: Female

DRUGS (2)
  1. METHOTREXATE [Suspect]
     Indication: ABORTION INDUCED
     Dosage: 50 MG PER_CYCLE IM
     Route: 030
  2. POTASSIUM CHLORIDE [Suspect]
     Indication: ABORTION INDUCED

REACTIONS (4)
  - BLOOD HUMAN CHORIONIC GONADOTROPIN DECREASED [None]
  - DRUG EXPOSURE DURING PREGNANCY [None]
  - ESCHERICHIA SEPSIS [None]
  - THROMBOCYTOPENIA [None]
